FAERS Safety Report 10419861 (Version 1)
Quarter: 2014Q3

REPORT INFORMATION
  Report Type: Spontaneous
  Country: CA (occurrence: CA)
  Receive Date: 20140829
  Receipt Date: 20140829
  Transmission Date: 20150326
  Serious: Yes (Life-Threatening, Hospitalization, Other)
  Sender: FDA-Public Use
  Company Number: CA-ROXANE LABORATORIES, INC.-2014-RO-01276RO

PATIENT
  Age: 26 Year
  Sex: Female

DRUGS (1)
  1. AZATHIOPRINE. [Suspect]
     Active Substance: AZATHIOPRINE
     Indication: CROHN^S DISEASE
     Route: 065

REACTIONS (4)
  - Pancytopenia [Unknown]
  - Genital herpes [Unknown]
  - Pneumonia streptococcal [Unknown]
  - Angiocentric lymphoma [Not Recovered/Not Resolved]
